FAERS Safety Report 19096137 (Version 1)
Quarter: 2021Q2

REPORT INFORMATION
  Report Type: Spontaneous
  Country: US (occurrence: US)
  Receive Date: 20210406
  Receipt Date: 20210406
  Transmission Date: 20210717
  Serious: Yes (Other)
  Sender: FDA-Public Use
  Company Number: US-SUN PHARMACEUTICAL INDUSTRIES LTD-2021R1-289311

PATIENT
  Age: 33 Year
  Sex: Male

DRUGS (2)
  1. OXYCODONE [Suspect]
     Active Substance: OXYCODONE
     Indication: ABDOMINAL PAIN
  2. OXYCODONE [Suspect]
     Active Substance: OXYCODONE
     Indication: PHANTOM LIMB SYNDROME
     Dosage: UNK
     Route: 065

REACTIONS (2)
  - Drug use disorder [Unknown]
  - Therapy partial responder [Unknown]
